FAERS Safety Report 9839809 (Version 2)
Quarter: 2014Q1

REPORT INFORMATION
  Report Type: Report from Study
  Country: US (occurrence: US)
  Receive Date: 20140124
  Receipt Date: 20140124
  Transmission Date: 20141002
  Serious: Yes (Hospitalization)
  Sender: FDA-Public Use
  Company Number: US-ROCHE-1286593

PATIENT
  Sex: Female

DRUGS (4)
  1. XELODA [Suspect]
     Indication: COLORECTAL CANCER METASTATIC
     Dosage: 1500 MG IN IN TH MORNING AND 1000 MG IN THE EVENING
     Route: 048
     Dates: start: 20130916, end: 20131126
  2. PRANDIN [Concomitant]
     Indication: DIABETES MELLITUS
  3. METFORMIN [Concomitant]
     Indication: DIABETES MELLITUS
     Route: 048
  4. PANCRELIPASE [Concomitant]
     Route: 048

REACTIONS (4)
  - Ovarian cyst [Recovering/Resolving]
  - Diarrhoea [Recovered/Resolved]
  - Ovarian enlargement [Unknown]
  - Dry skin [Not Recovered/Not Resolved]
